FAERS Safety Report 14568717 (Version 1)
Quarter: 2018Q1

REPORT INFORMATION
  Report Type: Spontaneous
  Country: US (occurrence: US)
  Receive Date: 20180223
  Receipt Date: 20180223
  Transmission Date: 20180509
  Serious: Yes (Other)
  Sender: FDA-Public Use
  Company Number: US-PFIZER INC-2017409847

PATIENT
  Age: 17 Year
  Sex: Male
  Weight: 51 kg

DRUGS (4)
  1. GENOTROPIN [Suspect]
     Active Substance: SOMATROPIN
     Dosage: 2 MG, ONCE A DAY, 6 DAYS A WEEK
     Dates: end: 201802
  2. GENOTROPIN [Suspect]
     Active Substance: SOMATROPIN
     Indication: GROWTH HORMONE DEFICIENCY
     Dosage: 2.1 MG, DAILY
     Dates: start: 201505
  3. GENOTROPIN [Suspect]
     Active Substance: SOMATROPIN
     Dosage: 2.1 MG, 6 DAYS A WEEK
     Dates: start: 20151009
  4. FOCALIN XR [Concomitant]
     Active Substance: DEXMETHYLPHENIDATE HYDROCHLORIDE
     Indication: ATTENTION DEFICIT/HYPERACTIVITY DISORDER
     Dosage: 20 MG, ONCE A DAY, 5 DAYS A WEEK DURING SCHOOL TIME
     Route: 048
     Dates: start: 2014, end: 20180205

REACTIONS (5)
  - Incorrect dose administered [Unknown]
  - Neoplasm progression [Not Recovered/Not Resolved]
  - Drug prescribing error [Unknown]
  - Blindness [Not Recovered/Not Resolved]
  - Tumour rupture [Not Recovered/Not Resolved]
